FAERS Safety Report 8759123 (Version 2)
Quarter: 2013Q1

REPORT INFORMATION
  Report Type: Spontaneous
  Country: AR (occurrence: AR)
  Receive Date: 20120829
  Receipt Date: 20130212
  Transmission Date: 20140127
  Serious: Yes (Hospitalization, Other)
  Sender: FDA-Public Use
  Company Number: PHHY2012AR073798

PATIENT
  Sex: Female

DRUGS (4)
  1. EXFORGE [Suspect]
     Indication: HYPERTENSION
     Dosage: 1 DF (160/5 MG), DAILY
     Dates: start: 201110
  2. EXFORGE [Suspect]
     Dosage: 1 DF, UNKNOWN DOSE IN MG
  3. DIOVAN [Suspect]
     Indication: HYPERTENSION
     Dosage: 1 DF, QD
     Route: 048
     Dates: end: 201210
  4. DIOVAN [Suspect]
     Dosage: 160 MG, QD
     Route: 048
     Dates: start: 201210

REACTIONS (7)
  - Bile duct stone [Unknown]
  - Fluid imbalance [Unknown]
  - Diverticulum [Unknown]
  - Malaise [Unknown]
  - Arrhythmia [Unknown]
  - Hypertension [Not Recovered/Not Resolved]
  - Local swelling [Unknown]
